FAERS Safety Report 18973005 (Version 1)
Quarter: 2021Q1

REPORT INFORMATION
  Report Type: Spontaneous
  Country: US (occurrence: US)
  Receive Date: 20210305
  Receipt Date: 20210305
  Transmission Date: 20210420
  Serious: No
  Sender: FDA-Public Use
  Company Number: US-AMGEN-USASP2021031632

PATIENT

DRUGS (4)
  1. NEUPOGEN [Suspect]
     Active Substance: FILGRASTIM
     Indication: HAEMATOPOIETIC STEM CELL MOBILISATION
     Dosage: 5 MICROGRAM/KILOGRAM, BID
     Route: 042
  2. CYCLOPHOSPHAMIDE. [Concomitant]
     Active Substance: CYCLOPHOSPHAMIDE
     Dosage: 100 MILLIGRAM/KILOGRAM
  3. CISPLATIN. [Concomitant]
     Active Substance: CISPLATIN
     Dosage: 125 MILLIGRAM/SQ. METER
  4. ETOPOSIDE. [Concomitant]
     Active Substance: ETOPOSIDE
     Dosage: 30 MILLIGRAM/KILOGRAM

REACTIONS (1)
  - Therapeutic product effect incomplete [Unknown]
